FAERS Safety Report 22262067 (Version 1)
Quarter: 2023Q2

REPORT INFORMATION
  Report Type: Report from Study
  Country: US (occurrence: US)
  Receive Date: 20230428
  Receipt Date: 20230428
  Transmission Date: 20230721
  Serious: Yes (Other)
  Sender: FDA-Public Use
  Company Number: US-ABBVIE-4741007

PATIENT
  Sex: Female

DRUGS (2)
  1. HUMIRA [Suspect]
     Active Substance: ADALIMUMAB
     Indication: Psoriasis
     Route: 058
     Dates: start: 20210509
  2. HUMIRA [Suspect]
     Active Substance: ADALIMUMAB
     Indication: Psoriatic arthropathy

REACTIONS (8)
  - Hernia [Unknown]
  - Thyroid disorder [Unknown]
  - Blood creatine increased [Unknown]
  - Dysphagia [Unknown]
  - Thyroid mass [Unknown]
  - Weight decreased [Unknown]
  - Balance disorder [Unknown]
  - Goitre [Unknown]
